FAERS Safety Report 6501556-5 (Version None)
Quarter: 2009Q4

REPORT INFORMATION
  Report Type: 
  Country: None (occurrence: None)
  Receive Date: 20091216
  Receipt Date: 20091207
  Transmission Date: 20100525
  Serious: Yes (Hospitalization)
  Sender: FDA-Public Use
  Company Number: B0616307A

PATIENT
  Age: 58 Year
  Sex: Male

DRUGS (5)
  1. ARIXTRA [Suspect]
     Indication: THROMBOSIS PROPHYLAXIS
     Dosage: 2.5MG PER DAY
     Route: 058
     Dates: start: 20091001, end: 20091207
  2. FUMAFER [Concomitant]
  3. ATARAX [Concomitant]
  4. TAMSULOSIN HCL [Concomitant]
  5. NEURONTIN [Concomitant]

REACTIONS (4)
  - ANAEMIA [None]
  - FATIGUE [None]
  - INCORRECT DRUG ADMINISTRATION DURATION [None]
  - OFF LABEL USE [None]
